FAERS Safety Report 14473351 (Version 1)
Quarter: 2018Q1

REPORT INFORMATION
  Report Type: Other
  Country: US (occurrence: US)
  Receive Date: 20180201
  Receipt Date: 20180201
  Transmission Date: 20180509
  Serious: Yes (Life-Threatening, Hospitalization)
  Sender: FDA-Public Use
  Company Number: US-ORCHID HEALTHCARE-2041202

PATIENT
  Age: 29 Year
  Sex: Male

DRUGS (1)
  1. DIVALPROEX SODIUM. [Suspect]
     Active Substance: DIVALPROEX SODIUM
     Route: 065

REACTIONS (9)
  - Lactic acidosis [Unknown]
  - Hypernatraemia [Unknown]
  - Hyperkalaemia [Unknown]
  - Anion gap increased [Unknown]
  - Overdose [Recovered/Resolved]
  - Drug level above therapeutic [Recovered/Resolved]
  - Hyperammonaemia [Unknown]
  - Hypocalcaemia [Unknown]
  - Mental status changes [Recovered/Resolved]
